FAERS Safety Report 4515138-8 (Version None)
Quarter: 2004Q4

REPORT INFORMATION
  Report Type: 
  Country: None (occurrence: None)
  Receive Date: 20041130
  Receipt Date: 20041130
  Transmission Date: 20050328
  Serious: Yes (Life-Threatening)
  Sender: FDA-Public Use
  Company Number: None

PATIENT
  Sex: Female
  Weight: 79.8331 kg

DRUGS (2)
  1. PERCOCET [Suspect]
     Indication: SURGERY
     Dosage: 2 TABS PO TID
     Route: 048
  2. OXYCONTIN [Suspect]
     Dosage: 3 TABS PO QD
     Route: 048

REACTIONS (7)
  - ABDOMINAL DISCOMFORT [None]
  - CONVULSION [None]
  - DIARRHOEA [None]
  - DRUG INEFFECTIVE [None]
  - PHARMACEUTICAL PRODUCT COMPLAINT [None]
  - RASH [None]
  - VOMITING [None]
